FAERS Safety Report 16976722 (Version 1)
Quarter: 2019Q4

REPORT INFORMATION
  Report Type: Spontaneous
  Country: US (occurrence: US)
  Receive Date: 20191030
  Receipt Date: 20191030
  Transmission Date: 20200122
  Serious: No
  Sender: FDA-Public Use
  Company Number: US-TEVA-2019-US-1129660

PATIENT
  Sex: Female

DRUGS (1)
  1. LIDOCAINE TRANSDERMAL PATCH 5% ACTAVIS [Suspect]
     Active Substance: LIDOCAINE
     Indication: NEURALGIA
     Route: 065
     Dates: start: 20191019

REACTIONS (3)
  - Drug ineffective [Unknown]
  - Product substitution issue [Unknown]
  - Product adhesion issue [Unknown]
